FAERS Safety Report 15309921 (Version 1)
Quarter: 2018Q3

REPORT INFORMATION
  Report Type: Spontaneous
  Country: US (occurrence: US)
  Receive Date: 20180823
  Receipt Date: 20180823
  Transmission Date: 20181010
  Serious: No
  Sender: FDA-Public Use
  Company Number: US-ACCORD-069233

PATIENT
  Age: 66 Year
  Sex: Female
  Weight: 69.85 kg

DRUGS (3)
  1. GLUCOTROL ER [Concomitant]
  2. GLUCOPHAGE [Concomitant]
     Active Substance: METFORMIN HYDROCHLORIDE
  3. PRAVASTATIN. [Suspect]
     Active Substance: PRAVASTATIN
     Indication: BLOOD CHOLESTEROL
     Dosage: STRENGTH: 20 MG?ONCE A DAY AT BEDTIME
     Route: 048
     Dates: start: 201803

REACTIONS (2)
  - Drug dose omission [Unknown]
  - Product packaging issue [Unknown]

NARRATIVE: CASE EVENT DATE: 201805
